FAERS Safety Report 15866381 (Version 2)
Quarter: 2019Q2

REPORT INFORMATION
  Report Type: Spontaneous
  Country: US (occurrence: US)
  Receive Date: 20190125
  Receipt Date: 20190508
  Transmission Date: 20190711
  Serious: No
  Sender: FDA-Public Use
  Company Number: US-PFIZER INC-2019031233

PATIENT
  Age: 61 Year
  Sex: Female
  Weight: 88 kg

DRUGS (9)
  1. ANASTROZOLE. [Concomitant]
     Active Substance: ANASTROZOLE
     Indication: BREAST CANCER FEMALE
     Dosage: 1 MG, 1X/DAY (1 TABLET PER DAY IN THE MORNING AFTER BREAKFAST)
     Route: 048
     Dates: start: 20180628, end: 20190221
  2. IBRANCE [Suspect]
     Active Substance: PALBOCICLIB
     Indication: INVASIVE DUCTAL BREAST CARCINOMA
     Dosage: 125 MG, CYCLIC (1 CAPSULE EVERY MORNING AFTER BREAKFAST FOR 21 DAYS AND THEN 7 DAYS OFF)
     Route: 048
     Dates: start: 20180717
  3. IBRANCE [Suspect]
     Active Substance: PALBOCICLIB
     Dosage: 125 MG, CYCLIC (1 CAPSULE EVERY MORNING AFTER BREAKFAST FOR 21 DAYS AND THEN 7 DAYS OFF)
     Route: 048
     Dates: start: 20180717
  4. SIMVASTATIN. [Concomitant]
     Active Substance: SIMVASTATIN
     Indication: BLOOD CHOLESTEROL
     Dosage: 20 MG, 1X/DAY (BEFORE BEDTIME)
     Route: 048
     Dates: start: 200808
  5. MAGNESIUM [Concomitant]
     Active Substance: MAGNESIUM
     Indication: SUPPLEMENTATION THERAPY
     Dosage: 250 MG, 1X/DAY (EVENING)
     Route: 048
     Dates: start: 1990
  6. COENZYME Q10 [Concomitant]
     Active Substance: UBIDECARENONE
     Indication: SUPPLEMENTATION THERAPY
     Dosage: 200 MG, 1X/DAY (EVENING)
     Route: 048
     Dates: start: 200808
  7. BIOTIN [Concomitant]
     Active Substance: BIOTIN
     Indication: SUPPLEMENTATION THERAPY
     Dosage: 1000 UG, 2X/DAY (1 TABLET IN THE MORNING AND ONE AT NIGHT)
     Route: 048
     Dates: start: 2016
  8. CALCIUM + D3 [Concomitant]
     Active Substance: CALCIUM\CHOLECALCIFEROL
     Indication: SUPPLEMENTATION THERAPY
     Dosage: 600 MG, 1X/DAY (EVENING)
     Route: 048
     Dates: start: 1990
  9. LETROZOLE. [Concomitant]
     Active Substance: LETROZOLE
     Dosage: UNK
     Dates: start: 20190221

REACTIONS (6)
  - Feeling abnormal [Recovering/Resolving]
  - Alopecia [Recovered/Resolved]
  - Arthralgia [Recovered/Resolved]
  - White blood cell count abnormal [Not Recovered/Not Resolved]
  - Myalgia [Recovered/Resolved]
  - Insomnia [Recovered/Resolved]

NARRATIVE: CASE EVENT DATE: 201808
